FAERS Safety Report 7572478-6 (Version None)
Quarter: 2011Q2

REPORT INFORMATION
  Report Type: 
  Country: None (occurrence: None)
  Receive Date: 20110625
  Receipt Date: 20110617
  Transmission Date: 20111010
  Serious: Yes (Death, Other)
  Sender: FDA-Public Use
  Company Number: PHHY2011KR54727

PATIENT
  Age: 33 Month

DRUGS (14)
  1. THIOTEPA [Concomitant]
     Dosage: UNK
  2. METHOTREXATE [Concomitant]
     Indication: STEM CELL TRANSPLANT
     Dosage: 15 MG/M2, UNK
  3. ETOPOSIDE [Concomitant]
     Dosage: UNK
  4. LEUCOVORIN CALCIUM [Concomitant]
     Dosage: 15 MG/M2, UNK
  5. CYCLOPHOSPHAMIDE [Concomitant]
     Dosage: UNK
  6. DOXORUBICIN HCL [Concomitant]
     Dosage: UNK
  7. TOPOTECAN [Concomitant]
     Dosage: UNK
  8. CYCLOSPORINE [Suspect]
     Indication: STEM CELL TRANSPLANT
     Dosage: 150-300 NG/ML
  9. CARBOPLATIN [Concomitant]
     Dosage: UNK
  10. CISPLATIN [Concomitant]
     Dosage: UNK
  11. NEUPOGEN [Concomitant]
     Dosage: 5-10 MG/KG ONCE DAILY
  12. MELPHALAN HYDROCHLORIDE [Concomitant]
     Dosage: UNK
  13. RADIOTHERAPY [Concomitant]
     Dosage: UNK
  14. IFOSFAMIDE [Concomitant]
     Dosage: UNK

REACTIONS (2)
  - NEOPLASM MALIGNANT [None]
  - ACUTE GRAFT VERSUS HOST DISEASE [None]
